FAERS Safety Report 5831601-1 (Version None)
Quarter: 2008Q3

REPORT INFORMATION
  Report Type: 
  Country: None (occurrence: None)
  Receive Date: 20080801
  Receipt Date: 20080723
  Transmission Date: 20090109
  Serious: Yes (Hospitalization)
  Sender: FDA-Public Use
  Company Number: FR-PFIZER INC-2008062810

PATIENT
  Sex: Female

DRUGS (12)
  1. FOSPHENYTOIN SODIUM [Suspect]
     Route: 042
     Dates: start: 20080429, end: 20080509
  2. PHENYTOIN [Suspect]
     Dosage: TEXT:EVERY DAY TDD:2 DF-FREQ:DAILY
     Route: 048
     Dates: start: 20080509, end: 20080517
  3. NORFLOXACIN [Suspect]
     Dosage: DAILY DOSE:800MG
     Route: 048
     Dates: start: 20080509, end: 20080517
  4. ATENOLOL [Concomitant]
     Route: 048
  5. VALPROIC ACID [Concomitant]
     Route: 042
     Dates: start: 20080428, end: 20080428
  6. FUROSEMIDE [Concomitant]
     Dates: start: 20060101, end: 20080428
  7. POTASSIUM CHLORIDE [Concomitant]
     Route: 048
  8. TIANEPTINE [Concomitant]
     Route: 048
  9. ATORVASTATIN [Concomitant]
     Dates: start: 20060101, end: 20080426
  10. NAFTIDROFURYL OXALATE [Concomitant]
     Route: 048
     Dates: start: 20060101, end: 20080428
  11. PANTOPRAZOLE SODIUM [Concomitant]
     Route: 048
  12. DOMPERIDONE [Concomitant]
     Route: 048

REACTIONS (2)
  - CHOLESTASIS [None]
  - CYTOLYTIC HEPATITIS [None]
